FAERS Safety Report 15651774 (Version 2)
Quarter: 2018Q4

REPORT INFORMATION
  Report Type: Spontaneous
  Country: BR (occurrence: BR)
  Receive Date: 20181123
  Receipt Date: 20181210
  Transmission Date: 20190205
  Serious: Yes (Life-Threatening, Hospitalization, Other)
  Sender: FDA-Public Use
  Company Number: PHHY2018BR161986

PATIENT
  Age: 55 Year
  Sex: Female
  Weight: 70 kg

DRUGS (8)
  1. NEVRIX [Concomitant]
     Indication: PRODUCT USED FOR UNKNOWN INDICATION
     Dosage: UNK
     Route: 065
  2. SYSTANE (HYPROMELLOSE 2910 (4000 MPA.S)) [Concomitant]
     Active Substance: HYPROMELLOSE 2910 (4000 MPA.S)
     Indication: DRY EYE
     Dosage: UNK
     Route: 065
  3. DIOSMIN [Suspect]
     Active Substance: DIOSMIN
     Indication: THROMBOSIS
     Dosage: UNK
     Route: 065
     Dates: start: 201712
  4. PANTOPRAZOLE [Concomitant]
     Active Substance: PANTOPRAZOLE
     Indication: ABDOMINAL PAIN UPPER
     Dosage: UNK
     Route: 065
  5. ROSUVASTATIN CALCIUM. [Suspect]
     Active Substance: ROSUVASTATIN CALCIUM
     Indication: STEM CELL TRANSPLANT
     Dosage: 1 DF, QD (AT NIGHT)
     Route: 048
     Dates: start: 201712
  6. SIMVASTATIN. [Suspect]
     Active Substance: SIMVASTATIN
     Indication: BLOOD CHOLESTEROL ABNORMAL
     Dosage: 1 DF, QD (AT NIGHT)
     Route: 048
     Dates: start: 2014, end: 20181105
  7. ROSUVASTATIN CALCIUM. [Suspect]
     Active Substance: ROSUVASTATIN CALCIUM
     Indication: BLOOD CHOLESTEROL ABNORMAL
  8. DEPURA [Concomitant]
     Active Substance: CHOLECALCIFEROL
     Indication: PRODUCT USED FOR UNKNOWN INDICATION
     Dosage: UNK
     Route: 065

REACTIONS (9)
  - Plasma cell myeloma [Recovering/Resolving]
  - Dry eye [Not Recovered/Not Resolved]
  - Thrombophlebitis superficial [Recovering/Resolving]
  - Myopia [Unknown]
  - Jugular vein thrombosis [Unknown]
  - Monoplegia [Recovering/Resolving]
  - Feeling abnormal [Unknown]
  - Hypothyroidism [Recovering/Resolving]
  - Neck pain [Recovering/Resolving]

NARRATIVE: CASE EVENT DATE: 2014
